FAERS Safety Report 7207654-5 (Version None)
Quarter: 2011Q1

REPORT INFORMATION
  Report Type: 
  Country: None (occurrence: None)
  Receive Date: 20110103
  Receipt Date: 20101223
  Transmission Date: 20110831
  Serious: Yes (Hospitalization)
  Sender: FDA-Public Use
  Company Number: DK-ASTRAZENECA-2010SE60966

PATIENT
  Age: 62 Year
  Sex: Female
  Weight: 72 kg

DRUGS (1)
  1. SEROQUEL [Suspect]
     Indication: DEPRESSION
     Dosage: STYRKE 25 MG
     Route: 048
     Dates: start: 20101209, end: 20101215

REACTIONS (5)
  - MALAISE [None]
  - FATIGUE [None]
  - SPEECH DISORDER [None]
  - FEELING HOT [None]
  - SOMNOLENCE [None]
